FAERS Safety Report 9796323 (Version 2)
Quarter: 2014Q1

REPORT INFORMATION
  Report Type: Spontaneous
  Country: US (occurrence: US)
  Receive Date: 20140103
  Receipt Date: 20140103
  Transmission Date: 20141002
  Serious: Yes (Other)
  Sender: FDA-Public Use
  Company Number: US-ABBVIE-12P-163-0909621-00

PATIENT
  Age: 41 Year
  Sex: Male

DRUGS (8)
  1. HUMIRA 40 MG/0.8 ML PEN [Suspect]
     Indication: CROHN^S DISEASE
     Route: 058
     Dates: start: 201201, end: 201201
  2. HUMIRA 40 MG/0.8 ML PEN [Suspect]
     Route: 058
     Dates: start: 201201, end: 201201
  3. HUMIRA 40 MG/0.8 ML PEN [Suspect]
     Route: 058
     Dates: start: 201202, end: 201202
  4. CYCLOSPORINE [Suspect]
     Indication: PRODUCT USED FOR UNKNOWN INDICATION
     Route: 048
  5. PREDNISONE [Concomitant]
     Indication: PRODUCT USED FOR UNKNOWN INDICATION
  6. MERCAPTOPURINE [Concomitant]
     Indication: PRODUCT USED FOR UNKNOWN INDICATION
  7. STEROIDS [Concomitant]
     Indication: CROHN^S DISEASE
  8. AZATHIOPRINE [Concomitant]
     Indication: CROHN^S DISEASE

REACTIONS (4)
  - Histiocytosis haematophagic [Not Recovered/Not Resolved]
  - T-cell lymphoma [Not Recovered/Not Resolved]
  - Pancytopenia [Unknown]
  - Pyrexia [Unknown]
